FAERS Safety Report 5689545-4 (Version None)
Quarter: 2008Q1

REPORT INFORMATION
  Report Type: 
  Country: None (occurrence: None)
  Receive Date: 20080331
  Receipt Date: 20080319
  Transmission Date: 20080703
  Serious: Yes (Death, Hospitalization)
  Sender: FDA-Public Use
  Company Number: BE-AMGEN-UK262537

PATIENT
  Sex: Female
  Weight: 96 kg

DRUGS (8)
  1. PANITUMUMAB [Suspect]
     Indication: SQUAMOUS CELL CARCINOMA
     Route: 042
     Dates: start: 20080109, end: 20080109
  2. PANITUMUMAB - PRIOR TO STUDY DRUG ADMINISTRATION [Suspect]
     Indication: SQUAMOUS CELL CARCINOMA
  3. RADIATION THERAPY [Concomitant]
     Route: 065
     Dates: start: 20080109, end: 20080111
  4. OMEPRAZOLE [Concomitant]
     Route: 048
     Dates: start: 20071206
  5. DAFALGAN [Concomitant]
     Route: 048
  6. MEDROL [Concomitant]
     Route: 048
     Dates: start: 20080110
  7. TRANXENE [Concomitant]
     Route: 048
     Dates: start: 20080109
  8. VITAMINS [Concomitant]
     Route: 048
     Dates: start: 20080110

REACTIONS (3)
  - DEATH [None]
  - HYPONATRAEMIA [None]
  - OEDEMA PERIPHERAL [None]
